FAERS Safety Report 23636321 (Version 4)
Quarter: 2024Q4

REPORT INFORMATION
  Report Type: Report from Study
  Country: CA (occurrence: CA)
  Receive Date: 20240315
  Receipt Date: 20241220
  Transmission Date: 20250115
  Serious: Yes (Hospitalization)
  Sender: BAUSCH AND LOMB
  Company Number: CA-BAUSCH-BL-2023-008821

PATIENT
  Age: 65 Year
  Sex: Female
  Weight: 90.8 kg

DRUGS (8)
  1. SILIQ [Suspect]
     Active Substance: BRODALUMAB
     Indication: Psoriasis
     Dosage: 210MG/ 1.5 ML, WEEKLY (WEEK 0-2)
     Route: 058
     Dates: start: 20221206, end: 202212
  2. SILIQ [Suspect]
     Active Substance: BRODALUMAB
     Dosage: 210MG/ 1.5 ML, Q2 WEEKS
     Route: 058
     Dates: start: 202301
  3. FRAGMIN [Concomitant]
     Active Substance: DALTEPARIN SODIUM
     Indication: Product used for unknown indication
  4. REACTINE [Concomitant]
     Indication: Product used for unknown indication
     Dosage: HALF THE PRESCRIBED DOSE
  5. CITALOPRAM HYDROBROMIDE [Concomitant]
     Active Substance: CITALOPRAM HYDROBROMIDE
     Indication: Anxiety
  6. ATORVASTATIN CALCIUM [Concomitant]
     Active Substance: ATORVASTATIN CALCIUM
     Indication: Blood cholesterol
  7. VITAMINS [Concomitant]
     Active Substance: VITAMINS
     Indication: Product used for unknown indication
  8. PMS CETIRIZINE [Concomitant]
     Indication: Product used for unknown indication

REACTIONS (6)
  - Gastrointestinal carcinoma [Recovered/Resolved]
  - Chest discomfort [Recovering/Resolving]
  - Secretion discharge [Recovering/Resolving]
  - Toothache [Recovering/Resolving]
  - Rash [Unknown]
  - Nasopharyngitis [Recovering/Resolving]

NARRATIVE: CASE EVENT DATE: 20230531
